FAERS Safety Report 4262929-7 (Version None)
Quarter: 2004Q1

REPORT INFORMATION
  Report Type: 
  Country: None (occurrence: None)
  Receive Date: 20040102
  Receipt Date: 20040102
  Transmission Date: 20041129
  Serious: Yes (Other)
  Sender: FDA-Public Use
  Company Number: None

PATIENT
  Age: 77 Year
  Sex: Male
  Weight: 96.6162 kg

DRUGS (10)
  1. PIOGLITAZONE HCL [Suspect]
     Indication: DIABETES MELLITUS NON-INSULIN-DEPENDENT
     Dosage: 30 MG QD ORAL
     Route: 048
     Dates: start: 20030725, end: 20030901
  2. ALLOPURINOL [Concomitant]
  3. LOVASTATIN [Concomitant]
  4. CITALOPRAM HYDROBROMIDE [Concomitant]
  5. NITROGLYCERIN [Concomitant]
  6. TERAZOSIN HCL [Concomitant]
  7. TRIAMTERENE [Concomitant]
  8. LABETALOL HCL [Concomitant]
  9. IRBESARTAN [Concomitant]
  10. GLYBURIDE [Concomitant]

REACTIONS (2)
  - HYPOGLYCAEMIA [None]
  - WEIGHT INCREASED [None]
